FAERS Safety Report 22752693 (Version 4)
Quarter: 2023Q4

REPORT INFORMATION
  Report Type: Report from Study
  Country: BD (occurrence: BD)
  Receive Date: 20230726
  Receipt Date: 20231107
  Transmission Date: 20240110
  Serious: Yes (Other)
  Sender: FDA-Public Use
  Company Number: BD-002147023-NVSC2023BD140823

PATIENT
  Age: 66 Year
  Sex: Male
  Weight: 52 kg

DRUGS (2)
  1. ENTRESTO [Suspect]
     Active Substance: SACUBITRIL\VALSARTAN
     Indication: Cardiac failure chronic
     Dosage: 50 MG, BID, (FOLLOWED BY 50 MG HALF TABLET BID)
     Route: 048
     Dates: start: 20230615, end: 202307
  2. ENTRESTO [Suspect]
     Active Substance: SACUBITRIL\VALSARTAN
     Dosage: 0.5 DOSAGE FORM, BID
     Route: 065

REACTIONS (19)
  - Asphyxia [Recovering/Resolving]
  - Pleural effusion [Recovering/Resolving]
  - Chest discomfort [Recovering/Resolving]
  - Eructation [Recovering/Resolving]
  - Hypoaesthesia [Recovering/Resolving]
  - Dry throat [Recovering/Resolving]
  - Diarrhoea [Recovered/Resolved]
  - Generalised oedema [Recovering/Resolving]
  - Decreased appetite [Recovering/Resolving]
  - Swelling face [Recovering/Resolving]
  - Pallor [Recovering/Resolving]
  - Malaise [Recovering/Resolving]
  - Cough [Recovering/Resolving]
  - Chest pain [Recovering/Resolving]
  - Muscular weakness [Recovering/Resolving]
  - Laziness [Recovering/Resolving]
  - Vertigo [Recovering/Resolving]
  - Underdose [Unknown]
  - Wrong technique in product usage process [Unknown]

NARRATIVE: CASE EVENT DATE: 20230601
